FAERS Safety Report 11537789 (Version 1)
Quarter: 2015Q3

REPORT INFORMATION
  Report Type: Spontaneous
  Country: IT (occurrence: IT)
  Receive Date: 20150922
  Receipt Date: 20150922
  Transmission Date: 20151125
  Serious: Yes (Other)
  Sender: FDA-Public Use
  Company Number: IT-IMPAX LABORATORIES, INC-2015-IPXL-00932

PATIENT
  Age: 71 Year
  Sex: Male

DRUGS (2)
  1. PRAMIPEXOLE. [Concomitant]
     Active Substance: PRAMIPEXOLE
     Indication: AKINESIA
     Dosage: 3 MG, DAILY
     Route: 065
  2. CARBIDOPA-LEVODOPA ER [Suspect]
     Active Substance: CARBIDOPA\LEVODOPA
     Indication: PARKINSON^S DISEASE
     Dosage: UNK
     Route: 065

REACTIONS (5)
  - Stereotypy [Unknown]
  - Drug abuse [Unknown]
  - Dopamine dysregulation syndrome [Unknown]
  - Dyskinesia [Unknown]
  - Akinesia [Unknown]
